FAERS Safety Report 10246490 (Version 3)
Quarter: 2014Q4

REPORT INFORMATION
  Report Type: Spontaneous
  Country: BR (occurrence: BR)
  Receive Date: 20140619
  Receipt Date: 20141017
  Transmission Date: 20150528
  Serious: Yes (Other)
  Sender: FDA-Public Use
  Company Number: BR-JNJFOC-20140610667

PATIENT
  Age: 50 Year
  Sex: Female

DRUGS (1)
  1. TRAMAL [Suspect]
     Active Substance: TRAMADOL
     Indication: PRODUCT USED FOR UNKNOWN INDICATION
     Route: 065

REACTIONS (7)
  - Paraesthesia [Unknown]
  - Blood pressure increased [Unknown]
  - Dry mouth [Unknown]
  - Muscle spasms [Unknown]
  - Conversion disorder [Unknown]
  - Feeling abnormal [Unknown]
  - Intercepted wrong patient selected [Unknown]
